FAERS Safety Report 10965899 (Version 2)
Quarter: 2015Q2

REPORT INFORMATION
  Report Type: Spontaneous
  Country: GB (occurrence: GB)
  Receive Date: 20150330
  Receipt Date: 20150528
  Transmission Date: 20150821
  Serious: Yes (Death)
  Sender: FDA-Public Use
  Company Number: GB-ABBVIE-15P-167-1368178-00

PATIENT
  Age: 45 Year
  Sex: Male

DRUGS (2)
  1. CLARITHROMYCIN IV [Suspect]
     Active Substance: CLARITHROMYCIN
     Indication: PNEUMONIA
     Route: 042
  2. OLANZAPINE. [Suspect]
     Active Substance: OLANZAPINE
     Indication: SCHIZOPHRENIA
     Route: 048

REACTIONS (2)
  - Cardiac arrest [Fatal]
  - Torsade de pointes [Fatal]
